FAERS Safety Report 25629865 (Version 1)
Quarter: 2025Q3

REPORT INFORMATION
  Report Type: Spontaneous
  Country: US (occurrence: US)
  Receive Date: 20250731
  Receipt Date: 20250731
  Transmission Date: 20251021
  Serious: No
  Sender: TAKEDA
  Company Number: US-TAKEDA-2025TUS066857

PATIENT
  Sex: Female

DRUGS (1)
  1. EOHILIA [Suspect]
     Active Substance: BUDESONIDE
     Indication: Eosinophilic oesophagitis

REACTIONS (3)
  - Migraine [Unknown]
  - Product use complaint [Unknown]
  - Inappropriate schedule of product administration [Unknown]
